FAERS Safety Report 20664906 (Version 8)
Quarter: 2022Q2

REPORT INFORMATION
  Report Type: Spontaneous
  Country: US (occurrence: US)
  Receive Date: 20220401
  Receipt Date: 20220519
  Transmission Date: 20220721
  Serious: Yes (Hospitalization)
  Sender: FDA-Public Use
  Company Number: US-MALLINCKRODT-T202201527

PATIENT
  Sex: Female
  Weight: 6 kg

DRUGS (13)
  1. H.P. ACTHAR [Suspect]
     Active Substance: CORTICOTROPIN
     Indication: Infantile spasms
     Dosage: 0.1 MILLILITER, QD
     Route: 030
     Dates: start: 20220321, end: 20220321
  2. H.P. ACTHAR [Suspect]
     Active Substance: CORTICOTROPIN
     Dosage: 0.4 MILLILITER, BID, FOR 14 DAYS
     Route: 030
     Dates: start: 20220322, end: 2022
  3. H.P. ACTHAR [Suspect]
     Active Substance: CORTICOTROPIN
     Dosage: UNK, INCREASING DOSAGE
     Route: 030
     Dates: start: 2022, end: 2022
  4. H.P. ACTHAR [Suspect]
     Active Substance: CORTICOTROPIN
     Dosage: UNK, ONCE A DAY
     Route: 065
     Dates: start: 2022
  5. H.P. ACTHAR [Suspect]
     Active Substance: CORTICOTROPIN
     Dosage: 0.3 MILLILITER, QD FOR 7 DAYS
     Route: 030
     Dates: start: 202204, end: 2022
  6. H.P. ACTHAR [Suspect]
     Active Substance: CORTICOTROPIN
     Dosage: 0.3 MILLILITER, QD EVERY MORNING FOR 7 DAYS
     Route: 030
     Dates: start: 20220401, end: 2022
  7. H.P. ACTHAR [Suspect]
     Active Substance: CORTICOTROPIN
     Dosage: 0.2 MILLILITER, QD FOR 7 DAYS
     Route: 030
     Dates: start: 2022, end: 2022
  8. H.P. ACTHAR [Suspect]
     Active Substance: CORTICOTROPIN
     Dosage: 0.1 MILLILITER, QD FOR 7 DAYS
     Route: 030
     Dates: start: 2022, end: 2022
  9. H.P. ACTHAR [Suspect]
     Active Substance: CORTICOTROPIN
     Dosage: 0.1 MILLILITER, QD MORNING FOR 7 DAYS
     Route: 030
     Dates: start: 2022, end: 2022
  10. H.P. ACTHAR [Suspect]
     Active Substance: CORTICOTROPIN
     Dosage: UNK, EVERY MORNING
     Route: 030
     Dates: start: 2022, end: 2022
  11. H.P. ACTHAR [Suspect]
     Active Substance: CORTICOTROPIN
     Dosage: 0.1 MILLILITER, ONCE DAILY, EVERY OTHER DAY
     Route: 065
     Dates: start: 2022
  12. PREVACID [Concomitant]
     Active Substance: LANSOPRAZOLE
     Indication: Product used for unknown indication
     Dosage: 4.2 MILLIGRAM, QD
     Route: 065
     Dates: start: 20220317
  13. KLONOPIN [Concomitant]
     Active Substance: CLONAZEPAM
     Indication: Product used for unknown indication
     Dosage: 0.1 MILLILITER, THREE TIMES DAILY
     Route: 065
     Dates: start: 20220318

REACTIONS (12)
  - Heart rate decreased [Not Recovered/Not Resolved]
  - Seizure [Not Recovered/Not Resolved]
  - Somnolence [Not Recovered/Not Resolved]
  - Developmental regression [Unknown]
  - Reduced facial expression [Not Recovered/Not Resolved]
  - Selective eating disorder [Unknown]
  - Developmental delay [Unknown]
  - Hypertension [Not Recovered/Not Resolved]
  - Irritability [Recovering/Resolving]
  - Weight increased [Not Recovered/Not Resolved]
  - Therapeutic product effect incomplete [Not Recovered/Not Resolved]
  - Product dose omission issue [Unknown]

NARRATIVE: CASE EVENT DATE: 20220101
